FAERS Safety Report 22204013 (Version 2)
Quarter: 2023Q2

REPORT INFORMATION
  Report Type: Spontaneous
  Country: KR (occurrence: KR)
  Receive Date: 20230412
  Receipt Date: 20230602
  Transmission Date: 20230721
  Serious: Yes (Death, Other)
  Sender: FDA-Public Use
  Company Number: KR-MYLANLABS-2023M1038307

PATIENT
  Age: 82 Year
  Sex: Male
  Weight: 63 kg

DRUGS (7)
  1. CELEBREX [Interacting]
     Active Substance: CELECOXIB
     Indication: Product used for unknown indication
     Dosage: UNK
     Route: 048
     Dates: start: 20190617
  2. CELEBREX [Interacting]
     Active Substance: CELECOXIB
     Dosage: 100 MILLIGRAM, BID (0.5 DAY)
     Route: 048
     Dates: start: 20190621
  3. GINKGO BILOBA LEAF DRY EXTRACT [Concomitant]
     Dosage: UNK
     Route: 065
     Dates: start: 20190623
  4. TRAMADOL HYDROCHLORIDE [Concomitant]
     Active Substance: TRAMADOL HYDROCHLORIDE
     Dosage: UNK
     Route: 042
     Dates: start: 20190621
  5. FAMCICLOVIR [Concomitant]
     Active Substance: FAMCICLOVIR
     Dosage: UNK
     Route: 065
     Dates: start: 20190617
  6. REBAMIPIDE [Concomitant]
     Active Substance: REBAMIPIDE
     Dosage: UNK
     Route: 065
     Dates: start: 20190617
  7. ACETAMINOPHEN\TRAMADOL HYDROCHLORIDE [Concomitant]
     Active Substance: ACETAMINOPHEN\TRAMADOL HYDROCHLORIDE
     Dosage: UNK
     Route: 065
     Dates: start: 20190621

REACTIONS (9)
  - Haemoptysis [Fatal]
  - Ventricular fibrillation [Fatal]
  - Malignant neoplasm progression [Fatal]
  - Pulmonary embolism [Fatal]
  - Thrombosis [Fatal]
  - Blood pressure increased [Fatal]
  - Cardiopulmonary failure [Fatal]
  - Labelled drug-drug interaction medication error [Fatal]
  - Heart rate increased [Unknown]

NARRATIVE: CASE EVENT DATE: 20190623
